FAERS Safety Report 9619303 (Version 1)
Quarter: 2013Q4

REPORT INFORMATION
  Report Type: Spontaneous
  Country: US (occurrence: US)
  Receive Date: 20131014
  Receipt Date: 20131014
  Transmission Date: 20140711
  Serious: Yes (Other)
  Sender: FDA-Public Use
  Company Number: US-PFIZER INC-2013289570

PATIENT
  Age: 30 Year
  Sex: Female
  Weight: 53.97 kg

DRUGS (2)
  1. XANAX [Suspect]
     Indication: ANXIETY
     Dosage: 2 MG (2 TABLETS OF 1MG IN THE MORNING AND 2 TABLET OF 1MG AT NIGHT), 2X/DAY
     Route: 048
     Dates: start: 2013, end: 2013
  2. XANAX [Suspect]
     Dosage: 2MG (2 TABLET OF 1MG AT NIGHT), 1X/DAY
     Route: 048
     Dates: start: 2013, end: 20131006

REACTIONS (11)
  - Road traffic accident [Unknown]
  - Impaired driving ability [Unknown]
  - Persecutory delusion [Unknown]
  - Haematuria [Unknown]
  - Dysuria [Unknown]
  - Drug ineffective [Unknown]
  - Polycystic ovaries [Unknown]
  - Drug screen positive [Unknown]
  - Weight decreased [Unknown]
  - Hyperphagia [Unknown]
  - Weight fluctuation [Unknown]
